FAERS Safety Report 5998024-6 (Version None)
Quarter: 2008Q4

REPORT INFORMATION
  Report Type: 
  Country: None (occurrence: None)
  Receive Date: 20081211
  Receipt Date: 20081125
  Transmission Date: 20090506
  Serious: Yes (Other)
  Sender: FDA-Public Use
  Company Number: KV200800542

PATIENT
  Age: 50 Year
  Sex: Female
  Weight: 70.3 kg

DRUGS (10)
  1. ISOSORBIDE MONONITRATE [Suspect]
     Indication: MYOCARDIAL INFARCTION
     Dosage: 30 MG, QD, ORAL
     Route: 048
     Dates: start: 20080101
  2. PLAVIX [Concomitant]
  3. TOPROL-XL [Concomitant]
  4. PROTONIX /01263201/ (PANTOPRAZOLE) [Concomitant]
  5. LASIX [Concomitant]
  6. SINGULAIR  /01362601/ (MONTELUKAST) [Concomitant]
  7. LIPITOR [Concomitant]
  8. XANAX [Concomitant]
  9. ASPIRIN [Concomitant]
  10. GLIPIZIDE [Concomitant]

REACTIONS (4)
  - CARDIAC FAILURE CONGESTIVE [None]
  - CONDITION AGGRAVATED [None]
  - DIZZINESS [None]
  - PRODUCT QUALITY ISSUE [None]
